FAERS Safety Report 4707375-4 (Version None)
Quarter: 2005Q3

REPORT INFORMATION
  Report Type: 
  Country: None (occurrence: None)
  Receive Date: 20050701
  Receipt Date: 20050701
  Transmission Date: 20060218
  Serious: Yes (Hospitalization, Other)
  Sender: FDA-Public Use
  Company Number: None

PATIENT
  Sex: Female
  Weight: 62.7 kg

DRUGS (1)
  1. GEMCITABINE [Suspect]
     Indication: PANCREATIC CARCINOMA
     Dosage: 1000MG/M2 IV WEEKLY X 7 THEN WEEKLY 3 WEEKS WITH ONE WEEK OFF
     Route: 042
     Dates: start: 20050309, end: 20050617

REACTIONS (3)
  - NAUSEA [None]
  - PAIN [None]
  - VOMITING [None]
